FAERS Safety Report 7802058-6 (Version None)
Quarter: 2011Q4

REPORT INFORMATION
  Report Type: 
  Country: None (occurrence: None)
  Receive Date: 20111007
  Receipt Date: 20110926
  Transmission Date: 20120403
  Serious: Yes (Hospitalization)
  Sender: FDA-Public Use
  Company Number: US-BAYER-2011-022530

PATIENT
  Age: 24 Year
  Sex: Female

DRUGS (3)
  1. YAZ [Suspect]
     Indication: ACNE
  2. NSAID'S [Concomitant]
  3. YAZ [Suspect]
     Indication: CONTRACEPTION
     Dosage: UNK
     Dates: start: 20070901, end: 20100901

REACTIONS (5)
  - GALLBLADDER DISORDER [None]
  - DYSPEPSIA [None]
  - ABDOMINAL PAIN [None]
  - PROCEDURAL PAIN [None]
  - CHOLECYSTITIS ACUTE [None]
